FAERS Safety Report 9026318 (Version 1)
Quarter: 2012Q4

REPORT INFORMATION
  Report Type: Spontaneous
  Country: US (occurrence: None)
  Receive Date: 20121214
  Receipt Date: 20121214
  Transmission Date: 20130627
  Serious: No
  Sender: FDA-Public Use
  Company Number: None

PATIENT
  Age: 27 Year
  Sex: Male
  Weight: 47.63 kg

DRUGS (2)
  1. DEMEROL 25 MG HOSPIRA [Suspect]
     Indication: ANAL FISSURE
     Dosage: 25mg  IV Push   IV Push
     Route: 042
     Dates: start: 20121212
  2. DEMEROL 25 MG HOSPIRA [Suspect]
     Indication: PAIN
     Dosage: 25mg  IV Push   IV Push
     Route: 042
     Dates: start: 20121212

REACTIONS (2)
  - Infusion site erythema [None]
  - Infusion site swelling [None]
